FAERS Safety Report 21184582 (Version 8)
Quarter: 2025Q3

REPORT INFORMATION
  Report Type: Report from Study
  Country: EU (occurrence: EU)
  Receive Date: 20220808
  Receipt Date: 20250806
  Transmission Date: 20251021
  Serious: Yes (Other)
  Sender: CSL BEHRING
  Company Number: EU-BEH-2022146718

PATIENT
  Sex: Female
  Weight: 63 kg

DRUGS (7)
  1. PRIVIGEN [Suspect]
     Active Substance: HUMAN IMMUNOGLOBULIN G
     Indication: Epilepsy
     Route: 042
     Dates: start: 20220610
  2. PRIVIGEN [Suspect]
     Active Substance: HUMAN IMMUNOGLOBULIN G
     Route: 042
  3. PRIVIGEN [Suspect]
     Active Substance: HUMAN IMMUNOGLOBULIN G
     Route: 042
  4. PRIVIGEN [Suspect]
     Active Substance: HUMAN IMMUNOGLOBULIN G
     Dosage: 25 GRAM, QD (0,4 GR/KG/DAY)
     Route: 065
     Dates: start: 20220610, end: 20220614
  5. PRIVIGEN [Suspect]
     Active Substance: HUMAN IMMUNOGLOBULIN G
     Dosage: 25 GRAM, QD (0,4 GR/KG/DAY))
     Route: 065
     Dates: start: 20220630, end: 20220704
  6. AMLODIPINE [Concomitant]
     Active Substance: AMLODIPINE BESYLATE
     Dosage: 5 MILLIGRAM, OD
  7. OXCARBAZEPINE [Concomitant]
     Active Substance: OXCARBAZEPINE
     Dosage: 300 MILLIGRAM, BID

REACTIONS (11)
  - Adrenal insufficiency [Recovered/Resolved]
  - Hyponatraemia [Recovered/Resolved]
  - Superficial vein thrombosis [Recovered/Resolved]
  - Infusion site swelling [Recovered/Resolved]
  - Infusion site erythema [Recovered/Resolved]
  - Infusion site warmth [Recovered/Resolved]
  - Blood immunoglobulin G increased [Recovered/Resolved]
  - Headache [Recovered/Resolved]
  - White blood cell count decreased [Recovered/Resolved]
  - Blood alkaline phosphatase increased [Unknown]
  - Off label use [Unknown]

NARRATIVE: CASE EVENT DATE: 20220613
